FAERS Safety Report 7217638-9 (Version None)
Quarter: 2011Q1

REPORT INFORMATION
  Report Type: 
  Country: None (occurrence: None)
  Receive Date: 20110110
  Receipt Date: 20110103
  Transmission Date: 20110831
  Serious: Yes (Hospitalization)
  Sender: FDA-Public Use
  Company Number: FR-ROCHE-751430

PATIENT
  Sex: Male
  Weight: 18.8 kg

DRUGS (14)
  1. BEVACIZUMAB [Suspect]
     Indication: RHABDOMYOSARCOMA
     Dosage: DOSAGE FORM: 7.5 MG/KG, LAST DOSE PRIOR TO SAE: 15 DEC 2010
     Route: 042
     Dates: start: 20101103
  2. MORPHINE [Concomitant]
     Dates: start: 20100101
  3. KETAMINE [Concomitant]
  4. DOXORUBICIN [Suspect]
     Indication: RHABDOMYOSARCOMA
     Dosage: FORM: 60 MG/M2,LAST DOSE PRIOR TO SAE: 16 DEC 2010
     Route: 042
     Dates: start: 20101103
  5. ROCEPHIN [Concomitant]
     Dates: start: 20101223, end: 20110103
  6. VANCOMYCIN HCL [Concomitant]
     Dates: start: 20101223, end: 20110103
  7. VINCRISTINE [Suspect]
     Indication: RHABDOMYOSARCOMA
     Dosage: FORM: 1.5 MG/M2, LAST DOSE PRIOR TO SAE: 22 DEC 2010
     Route: 042
     Dates: start: 20101103
  8. PROCTOLOG [Concomitant]
  9. AMITRIPTYLINE HCL [Concomitant]
  10. FLIXOTIDE [Concomitant]
  11. DACTINOMYCIN [Suspect]
     Indication: RHABDOMYOSARCOMA
     Dosage: FORM: 1.5 MG/M2, LAST DOSE PRIOR TO SAE: 15 DEC 2010
     Route: 042
     Dates: start: 20101103
  12. IFOSFAMIDE [Suspect]
     Indication: RHABDOMYOSARCOMA
     Dosage: FORM: 6 G/M2,LAST DOSE PRIOR TO SAE: 16 DEC 2010
     Route: 042
     Dates: start: 20101103
  13. MOVICOL [Concomitant]
  14. AMIKACIN [Concomitant]
     Dates: start: 20101223, end: 20101227

REACTIONS (2)
  - MUCOSAL INFLAMMATION [None]
  - FEBRILE BONE MARROW APLASIA [None]
